FAERS Safety Report 7523556-9 (Version None)
Quarter: 2011Q2

REPORT INFORMATION
  Report Type: 
  Country: None (occurrence: None)
  Receive Date: 20110603
  Receipt Date: 20110525
  Transmission Date: 20111010
  Serious: Yes (Other)
  Sender: FDA-Public Use
  Company Number: PHHY2011GB45216

PATIENT
  Age: 59 Year
  Sex: Female

DRUGS (1)
  1. DIPHENHYDRAMINE HCL [Suspect]
     Indication: MIGRAINE
     Dosage: UNK
     Route: 048
     Dates: start: 20090101

REACTIONS (6)
  - DRUG INEFFECTIVE [None]
  - FAECALOMA [None]
  - HEADACHE [None]
  - ABDOMINAL PAIN [None]
  - DRUG DEPENDENCE [None]
  - DIARRHOEA [None]
